FAERS Safety Report 15450706 (Version 2)
Quarter: 2018Q4

REPORT INFORMATION
  Report Type: Report from Study
  Country: EC (occurrence: EC)
  Receive Date: 20181001
  Receipt Date: 20181015
  Transmission Date: 20190204
  Serious: Yes (Death)
  Sender: FDA-Public Use
  Company Number: PHHY2018EC111089

PATIENT
  Age: 89 Year
  Sex: Female
  Weight: 52.16 kg

DRUGS (1)
  1. ENTRESTO [Suspect]
     Active Substance: SACUBITRIL\VALSARTAN
     Indication: CARDIAC FAILURE
     Dosage: 100 MG, BID
     Route: 048
     Dates: start: 20180502, end: 20180825

REACTIONS (4)
  - Renal disorder [Fatal]
  - Chest pain [Unknown]
  - Cardiac failure [Fatal]
  - Liver disorder [Fatal]

NARRATIVE: CASE EVENT DATE: 20180825
